FAERS Safety Report 18283208 (Version 1)
Quarter: 2020Q3

REPORT INFORMATION
  Report Type: Spontaneous
  Country: US (occurrence: US)
  Receive Date: 20200918
  Receipt Date: 20200918
  Transmission Date: 20201103
  Serious: Yes (Other)
  Sender: FDA-Public Use
  Company Number: US-ELI_LILLY_AND_COMPANY-US202009004726

PATIENT
  Sex: Female

DRUGS (2)
  1. NOVOLOG [Concomitant]
     Active Substance: INSULIN ASPART
     Indication: TYPE 2 DIABETES MELLITUS
     Dosage: 18 U, TID
     Route: 058
  2. BASAGLAR [Suspect]
     Active Substance: INSULIN GLARGINE
     Dosage: 30 U, DAILY (NIGHT)
     Route: 058

REACTIONS (5)
  - Drug ineffective [Unknown]
  - Poor peripheral circulation [Unknown]
  - Visual impairment [Unknown]
  - Wrong patient received product [Unknown]
  - Blood glucose increased [Recovered/Resolved]
